FAERS Safety Report 24010538 (Version 1)
Quarter: 2024Q2

REPORT INFORMATION
  Report Type: Spontaneous
  Country: US (occurrence: None)
  Receive Date: 20240624
  Receipt Date: 20240624
  Transmission Date: 20240716
  Serious: Yes (Death)
  Sender: FDA-Public Use
  Company Number: None

PATIENT
  Age: 58 Year
  Sex: Male

DRUGS (5)
  1. GILOTRIF [Suspect]
     Active Substance: AFATINIB
     Indication: Non-small cell lung cancer metastatic
     Dosage: 40 MG DAILY ORAL?
     Route: 048
     Dates: start: 20240405, end: 20240618
  2. Dexamethasone 4 mg tablets [Concomitant]
     Dates: start: 20240402, end: 20240618
  3. Folic acid 1 mg tablets [Concomitant]
     Dates: start: 20240402, end: 20240618
  4. GABAPENTIN [Concomitant]
     Active Substance: GABAPENTIN
     Dates: start: 20240402, end: 20240618
  5. Morphine Sulfate 15 mg Immediate Release Tablets [Concomitant]
     Dates: start: 20240402, end: 20240618

REACTIONS (1)
  - Death [None]

NARRATIVE: CASE EVENT DATE: 20240618
